FAERS Safety Report 9462518 (Version 1)
Quarter: 2013Q3

REPORT INFORMATION
  Report Type: Spontaneous
  Country: US (occurrence: None)
  Receive Date: 20130815
  Receipt Date: 20130815
  Transmission Date: 20140515
  Serious: No
  Sender: FDA-Public Use
  Company Number: None

PATIENT
  Age: 67 Year
  Sex: Male
  Weight: 92.3 kg

DRUGS (1)
  1. LIRAGLUTIDE [Suspect]
     Route: 058
     Dates: start: 20130118, end: 20130122

REACTIONS (1)
  - Pancreatitis [None]
